FAERS Safety Report 15834804 (Version 2)
Quarter: 2019Q1

REPORT INFORMATION
  Report Type: Spontaneous
  Country: DE (occurrence: DE)
  Receive Date: 20190116
  Receipt Date: 20190116
  Transmission Date: 20190417
  Serious: Yes (Death, Life-Threatening, Hospitalization, Other)
  Sender: FDA-Public Use
  Company Number: PHHY2019DE002609

PATIENT

DRUGS (24)
  1. FENTANYL. [Concomitant]
     Active Substance: FENTANYL
     Indication: BONE PAIN
     Dosage: 100 UG, QD
     Route: 065
     Dates: start: 20140415
  2. PREDNISOLON [Suspect]
     Active Substance: PREDNISOLONE
     Indication: PROSTATE CANCER METASTATIC
     Dosage: 10 MG, QD
     Route: 065
     Dates: start: 20141117
  3. AMLODIPINE [Concomitant]
     Active Substance: AMLODIPINE BESYLATE
     Indication: HYPERTENSION
     Dosage: 5 MG, QD
     Route: 065
     Dates: start: 20140415
  4. NOVAMINSULFON [Concomitant]
     Active Substance: METAMIZOLE
     Indication: BONE PAIN
     Dosage: UNK, QD
     Route: 065
     Dates: start: 20140415
  5. CLINDAMYCIN. [Concomitant]
     Active Substance: CLINDAMYCIN
     Indication: OSTEITIS
     Dosage: 900 MG, UNK
     Route: 065
     Dates: start: 20150109
  6. ABIRATERONE ACETATE. [Suspect]
     Active Substance: ABIRATERONE ACETATE
     Dosage: 500 MG, QD
     Route: 048
     Dates: start: 20141214
  7. HYDROCORTISONE. [Concomitant]
     Active Substance: HYDROCORTISONE
     Indication: ADRENAL INSUFFICIENCY
     Dosage: 30 MG, UNK
     Route: 065
  8. PANTOZOL [Concomitant]
     Active Substance: PANTOPRAZOLE SODIUM
     Indication: GASTROINTESTINAL DISORDER THERAPY
     Dosage: 30 MG, QD
     Route: 065
     Dates: start: 20150109
  9. TORASEMID [Concomitant]
     Active Substance: TORSEMIDE
     Dosage: 40 MG, UNK
     Route: 065
     Dates: start: 20150203
  10. AMITRIPTYLIN [Concomitant]
     Active Substance: AMITRIPTYLINE
     Dosage: 10 MG, UNK
     Route: 065
     Dates: start: 20150203
  11. RASILEZ [Concomitant]
     Active Substance: ALISKIREN
     Indication: HYPERTENSION
     Dosage: 150 MG, QD
     Route: 065
     Dates: start: 20140415
  12. LORAZEPAM. [Concomitant]
     Active Substance: LORAZEPAM
     Indication: INSOMNIA
     Dosage: 1 MG, QD
     Route: 065
     Dates: start: 20140415
  13. ABIRATERONE ACETATE. [Suspect]
     Active Substance: ABIRATERONE ACETATE
     Dosage: 500 MG, QD
     Route: 048
     Dates: start: 20150117
  14. CALCIUM [Concomitant]
     Active Substance: CALCIUM
     Indication: HYPOCALCAEMIA
     Dosage: 600 MG, QD
     Route: 065
     Dates: start: 20140415
  15. ABIRATERONE ACETATE. [Suspect]
     Active Substance: ABIRATERONE ACETATE
     Dosage: 1000 MG, QD
     Route: 048
     Dates: start: 20141117
  16. PALLADON [Concomitant]
     Active Substance: HYDROMORPHONE
     Indication: BONE PAIN
     Dosage: 24 MG, QD
     Route: 065
     Dates: start: 20141128
  17. PALLADON [Concomitant]
     Active Substance: HYDROMORPHONE
     Indication: PAIN MANAGEMENT
     Dosage: 2.6 MG, UNK
     Route: 065
     Dates: start: 20140415
  18. PALLADON [Concomitant]
     Active Substance: HYDROMORPHONE
     Dosage: DOSAGE FORM: UNSPECIFIED, ON DEMAND AS PAIN RESCUE MEDICATION
     Route: 065
  19. TORASEMID [Concomitant]
     Active Substance: TORSEMIDE
     Indication: OEDEMA
     Dosage: 40 MG, UNK
     Route: 065
     Dates: start: 20150109
  20. ABIRATERONE ACETATE. [Suspect]
     Active Substance: ABIRATERONE ACETATE
     Indication: PROSTATE CANCER METASTATIC
     Dosage: 1000 MG, QD
     Route: 048
     Dates: start: 20141125
  21. TRENANTONE [Concomitant]
     Active Substance: LEUPROLIDE ACETATE
     Indication: PROSTATE CANCER
     Dosage: 11.25 MG, Q3MO
     Route: 065
     Dates: start: 20130410
  22. PANTOZOL [Concomitant]
     Active Substance: PANTOPRAZOLE SODIUM
     Dosage: 30 MG, QD
     Route: 065
     Dates: start: 20150203
  23. CLINDAMYCIN. [Concomitant]
     Active Substance: CLINDAMYCIN
     Dosage: 900 MG, UNK
     Route: 065
     Dates: start: 20150203
  24. AMITRIPTYLIN [Concomitant]
     Active Substance: AMITRIPTYLINE
     Indication: SOMNOLENCE
     Dosage: 10 MG, UNK
     Route: 065
     Dates: start: 20150109

REACTIONS (7)
  - Prostatic specific antigen increased [Unknown]
  - Prostate cancer metastatic [Fatal]
  - Gamma-glutamyltransferase increased [Unknown]
  - Metastases to liver [Recovered/Resolved with Sequelae]
  - Hepatic function abnormal [Fatal]
  - Anaemia of malignant disease [Recovered/Resolved]
  - Alanine aminotransferase increased [Unknown]

NARRATIVE: CASE EVENT DATE: 20141205
